FAERS Safety Report 8211622-4 (Version None)
Quarter: 2012Q1

REPORT INFORMATION
  Report Type: 
  Country: None (occurrence: None)
  Receive Date: 20120228
  Receipt Date: 20110830
  Transmission Date: 20120608
  Serious: Yes (Hospitalization, Other)
  Sender: FDA-Public Use
  Company Number: RB-31909-2011

PATIENT
  Sex: Male

DRUGS (3)
  1. BUPRENORPHINE HCL [Suspect]
     Indication: DRUG DEPENDENCE
     Dosage: 20 MG TRANSMAMMARY, TRANSPLACENTAL
     Route: 064
     Dates: start: 20100101, end: 20110601
  2. BUPRENORPHINE HCL [Suspect]
     Indication: DRUG DEPENDENCE
     Dosage: 20 MG TRANSMAMMARY, TRANSPLACENTAL
     Route: 064
     Dates: start: 20110601, end: 20110611
  3. SUBOXONE [Suspect]
     Indication: DRUG DEPENDENCE
     Dosage: 20 MG, ATRANSMAMMARY, FIRST TRIMESTER TRANSPLACENTAL
     Route: 064
     Dates: start: 20100801

REACTIONS (4)
  - POOR SUCKING REFLEX [None]
  - DIARRHOEA [None]
  - DRUG WITHDRAWAL SYNDROME NEONATAL [None]
  - IRRITABILITY [None]
